FAERS Safety Report 19482880 (Version 1)
Quarter: 2021Q3

REPORT INFORMATION
  Report Type: Spontaneous
  Country: FR (occurrence: FR)
  Receive Date: 20210701
  Receipt Date: 20210701
  Transmission Date: 20211014
  Serious: Yes (Other)
  Sender: FDA-Public Use
  Company Number: FR-TEVA-2021-FR-1927928

PATIENT
  Age: 59 Year
  Sex: Female

DRUGS (5)
  1. IRINOTECAN [Suspect]
     Active Substance: IRINOTECAN
     Indication: RECTAL CANCER
     Route: 042
     Dates: start: 20201130, end: 20210226
  2. CAPECITABINE. [Suspect]
     Active Substance: CAPECITABINE
     Indication: RECTAL CANCER
     Route: 048
     Dates: start: 20210301, end: 20210414
  3. OXALIPLATINE [Suspect]
     Active Substance: OXALIPLATIN
     Indication: RECTAL CANCER
     Route: 042
     Dates: start: 20201130, end: 20210226
  4. COMIRNATY [Suspect]
     Active Substance: TOZINAMERAN
     Indication: COVID-19 IMMUNISATION
     Dosage: D3,CONCENTRATE FOR INJECTION1DF
     Route: 030
     Dates: start: 20210507, end: 20210507
  5. FLUOROURACIL. [Suspect]
     Active Substance: FLUOROURACIL
     Indication: RECTAL CANCER
     Route: 042
     Dates: start: 20201130, end: 20210226

REACTIONS (1)
  - Pericardial effusion [Recovering/Resolving]

NARRATIVE: CASE EVENT DATE: 20210517
